FAERS Safety Report 7604196-X (Version None)
Quarter: 2011Q3

REPORT INFORMATION
  Report Type: 
  Country: None (occurrence: None)
  Receive Date: 20110712
  Receipt Date: 20110711
  Transmission Date: 20111222
  Serious: Yes (Hospitalization, Disabling, Other)
  Sender: FDA-Public Use
  Company Number: US-MERCK-0906USA03786

PATIENT
  Age: 49 Year
  Sex: Female
  Weight: 48 kg

DRUGS (4)
  1. FOSAMAX [Suspect]
     Indication: OSTEOPOROSIS
     Route: 048
     Dates: start: 19960701, end: 20030301
  2. FOSAMAX PLUS D [Suspect]
     Indication: OSTEOPOROSIS
     Route: 048
     Dates: start: 20060807, end: 20070701
  3. BONIVA [Suspect]
     Route: 048
     Dates: start: 20060609, end: 20060807
  4. FOSAMAX [Suspect]
     Route: 048
     Dates: start: 20030301, end: 20060601

REACTIONS (38)
  - BRONCHITIS [None]
  - HYPOXIA [None]
  - BREATH ODOUR [None]
  - FALL [None]
  - JOINT INJURY [None]
  - BONE DISORDER [None]
  - OSTEOMYELITIS [None]
  - ASTHENIA [None]
  - PURULENT DISCHARGE [None]
  - PAIN IN EXTREMITY [None]
  - INFECTION [None]
  - DENTAL CARIES [None]
  - JAW DISORDER [None]
  - ANXIETY [None]
  - PYREXIA [None]
  - PERIODONTAL DISEASE [None]
  - HYPOPHAGIA [None]
  - OSTEONECROSIS OF JAW [None]
  - ROAD TRAFFIC ACCIDENT [None]
  - PRESBYOPIA [None]
  - PNEUMONIA [None]
  - CHEST PAIN [None]
  - CONTUSION [None]
  - DYSPEPSIA [None]
  - FACE OEDEMA [None]
  - TOOTH FRACTURE [None]
  - LYMPHADENOPATHY [None]
  - PAIN IN JAW [None]
  - CHRONIC OBSTRUCTIVE PULMONARY DISEASE [None]
  - CYST [None]
  - DEPRESSION [None]
  - HEADACHE [None]
  - PARAESTHESIA [None]
  - BRONCHOSPASM [None]
  - ANAEMIA [None]
  - FRACTURE [None]
  - WEIGHT DECREASED [None]
  - COUGH [None]
